FAERS Safety Report 17150865 (Version 1)
Quarter: 2019Q4

REPORT INFORMATION
  Report Type: Spontaneous
  Country: CA (occurrence: CA)
  Receive Date: 20191213
  Receipt Date: 20191213
  Transmission Date: 20200122
  Serious: Yes (Other)
  Sender: FDA-Public Use
  Company Number: CA-ALLERGAN-1950959US

PATIENT
  Sex: Female
  Weight: 51.7 kg

DRUGS (5)
  1. IRBESARTAN SANDOZ [Concomitant]
     Active Substance: IRBESARTAN
  2. SYNTHROID [Concomitant]
     Active Substance: LEVOTHYROXINE SODIUM
  3. AMITRIPTYLINE [Concomitant]
     Active Substance: AMITRIPTYLINE
  4. LYRICA [Concomitant]
     Active Substance: PREGABALIN
  5. RESTASIS [Suspect]
     Active Substance: CYCLOSPORINE
     Indication: DRY EYE
     Dosage: 1 DF, QOD
     Route: 065

REACTIONS (1)
  - Alopecia [Recovering/Resolving]
